FAERS Safety Report 12888963 (Version 1)
Quarter: 2016Q4

REPORT INFORMATION
  Report Type: Spontaneous
  Country: FR (occurrence: FR)
  Receive Date: 20161027
  Receipt Date: 20161027
  Transmission Date: 20170207
  Serious: Yes (Hospitalization)
  Sender: FDA-Public Use
  Company Number: FR-PFIZER INC-2016486539

PATIENT
  Age: 79 Year
  Sex: Male

DRUGS (11)
  1. PRAVASTATIN. [Concomitant]
     Active Substance: PRAVASTATIN
  2. GLUCOR [Concomitant]
     Active Substance: ACARBOSE
  3. AMOXICILLIN. [Concomitant]
     Active Substance: AMOXICILLIN
  4. DOCETAXEL HOSPIRA [Suspect]
     Active Substance: DOCETAXEL
     Indication: PROSTATE CANCER
     Dosage: 130 MG, CYCLIC (5TH CYCLE)
     Route: 042
     Dates: start: 20160915, end: 20160915
  5. DAONIL [Concomitant]
     Active Substance: GLYBURIDE
  6. SILODYX [Concomitant]
     Active Substance: SILODOSIN
  7. METFORMIN [Concomitant]
     Active Substance: METFORMIN HYDROCHLORIDE
  8. QUINAPRIL. [Concomitant]
     Active Substance: QUINAPRIL
  9. LOVENOX [Concomitant]
     Active Substance: ENOXAPARIN SODIUM
  10. FLODIL /00646501/ [Concomitant]
     Active Substance: FELODIPINE
  11. CERIS [Concomitant]
     Active Substance: TROSPIUM CHLORIDE

REACTIONS (1)
  - Atrial fibrillation [Recovered/Resolved]

NARRATIVE: CASE EVENT DATE: 20160924
